FAERS Safety Report 15838282 (Version 4)
Quarter: 2019Q2

REPORT INFORMATION
  Report Type: Report from Study
  Country: SE (occurrence: SE)
  Receive Date: 20190117
  Receipt Date: 20190510
  Transmission Date: 20190711
  Serious: Yes (Hospitalization, Other)
  Sender: FDA-Public Use
  Company Number: PHHY2019SE006576

PATIENT
  Age: 14 Year
  Sex: Female
  Weight: 37.8 kg

DRUGS (6)
  1. MEKINIST [Suspect]
     Active Substance: TRAMETINIB DIMETHYL SULFOXIDE
     Indication: GLIOMA
     Dosage: 0.875 MG, QD
     Route: 048
     Dates: start: 20181206
  2. MEKINIST [Suspect]
     Active Substance: TRAMETINIB DIMETHYL SULFOXIDE
     Dosage: 0.875 MG, QD
     Route: 048
     Dates: start: 20190503
  3. MEKINIST [Suspect]
     Active Substance: TRAMETINIB DIMETHYL SULFOXIDE
     Dosage: 0.875 MG, QD
     Route: 048
     Dates: start: 20190109
  4. CIPROXIN [Concomitant]
     Active Substance: CIPROFLOXACIN
     Indication: PRODUCT USED FOR UNKNOWN INDICATION
     Dosage: 800 MG, QD
     Dates: start: 20190501, end: 20190503
  5. MEKINIST [Suspect]
     Active Substance: TRAMETINIB DIMETHYL SULFOXIDE
     Dosage: 0.875 MG, QD
     Route: 048
     Dates: start: 20190213, end: 20190409
  6. NO TREATMENT RECEIVED [Suspect]
     Active Substance: UNSPECIFIED INGREDIENT
     Indication: PRODUCT USED FOR UNKNOWN INDICATION
     Route: 065

REACTIONS (35)
  - Pruritus [Not Recovered/Not Resolved]
  - Paronychia [Not Recovered/Not Resolved]
  - Nausea [Unknown]
  - Oesophagitis [Not Recovered/Not Resolved]
  - Pancreatitis [Not Recovered/Not Resolved]
  - Abdominal pain upper [Recovered/Resolved]
  - Tinnitus [Recovering/Resolving]
  - Staphylococcal infection [Recovered/Resolved]
  - Pain of skin [Not Recovered/Not Resolved]
  - Oedema peripheral [Not Recovered/Not Resolved]
  - Diarrhoea [Recovered/Resolved]
  - Staphylococcal infection [Unknown]
  - Malignant neoplasm progression [Unknown]
  - Skin infection [Recovered/Resolved]
  - Rash [Not Recovered/Not Resolved]
  - Abdominal pain upper [Unknown]
  - Upper respiratory tract infection [Recovered/Resolved]
  - Skin reaction [Recovering/Resolving]
  - Erythema [Not Recovered/Not Resolved]
  - Vision blurred [Not Recovered/Not Resolved]
  - Abdominal pain [Not Recovered/Not Resolved]
  - Diarrhoea [Not Recovered/Not Resolved]
  - Beta globulin decreased [Unknown]
  - Folliculitis [Unknown]
  - Pyrexia [Recovered/Resolved]
  - Pneumonia klebsiella [Unknown]
  - Brain stem glioma [Unknown]
  - Abdominal distension [Unknown]
  - Hypoaesthesia [Not Recovered/Not Resolved]
  - Pyrexia [Recovered/Resolved]
  - Pain in extremity [Not Recovered/Not Resolved]
  - Pneumococcal infection [Recovered/Resolved]
  - Viral infection [Recovered/Resolved]
  - Abdominal pain [Recovered/Resolved]
  - Fatigue [Not Recovered/Not Resolved]

NARRATIVE: CASE EVENT DATE: 20181206
